FAERS Safety Report 17280057 (Version 1)
Quarter: 2020Q1

REPORT INFORMATION
  Report Type: Spontaneous
  Country: US (occurrence: US)
  Receive Date: 20200117
  Receipt Date: 20200117
  Transmission Date: 20200409
  Serious: No
  Sender: FDA-Public Use
  Company Number: US-GLAXOSMITHKLINE-US2020008087

PATIENT
  Age: 6 Year
  Sex: Female

DRUGS (1)
  1. FLONASE SENSIMIST ALLERGY RELIEF [Suspect]
     Active Substance: FLUTICASONE FUROATE
     Indication: HYPERSENSITIVITY
     Dosage: UNK, 1D
     Dates: start: 20191227

REACTIONS (2)
  - Enuresis [Unknown]
  - Polydipsia [Unknown]

NARRATIVE: CASE EVENT DATE: 20200103
